FAERS Safety Report 21168457 (Version 1)
Quarter: 2022Q3

REPORT INFORMATION
  Report Type: Spontaneous
  Country: US (occurrence: JP)
  Receive Date: 20220803
  Receipt Date: 20220803
  Transmission Date: 20221027
  Serious: Yes (Death)
  Sender: FDA-Public Use
  Company Number: US-MALLINCKRODT-T202203983

PATIENT

DRUGS (1)
  1. NITRIC OXIDE [Suspect]
     Active Substance: NITRIC OXIDE
     Indication: Pulmonary hypertension
     Dosage: UNK (INHALATION)
     Route: 055
     Dates: start: 20220625, end: 20220625

REACTIONS (3)
  - Circulatory collapse [Fatal]
  - Asphyxia [Fatal]
  - Condition aggravated [Fatal]

NARRATIVE: CASE EVENT DATE: 20220625
